FAERS Safety Report 10054952 (Version 1)
Quarter: 2014Q2

REPORT INFORMATION
  Report Type: Spontaneous
  Country: US (occurrence: US)
  Receive Date: 20140402
  Receipt Date: 20140402
  Transmission Date: 20141212
  Serious: Yes (Other)
  Sender: FDA-Public Use
  Company Number: ALCN2014US001994

PATIENT
  Age: 75 Year
  Sex: Female

DRUGS (4)
  1. SYSTANE ULTRA HIGH PERFORMANCE [Suspect]
     Indication: EYE PAIN
     Dosage: 1 GTT, PRN
     Route: 047
  2. SYSTANE ULTRA HIGH PERFORMANCE [Suspect]
     Indication: OCULAR DISCOMFORT
  3. LONOX [Concomitant]
     Indication: AUTONOMIC NERVOUS SYSTEM IMBALANCE
     Dosage: 1 UNK, UNK
     Route: 048
  4. KETOTIFEN [Concomitant]
     Indication: EYE ALLERGY
     Dosage: 1 GTT, PRN
     Route: 047

REACTIONS (1)
  - Palpitations [Recovered/Resolved]
